FAERS Safety Report 8587828-1 (Version None)
Quarter: 2012Q3

REPORT INFORMATION
  Report Type: 
  Country: None (occurrence: None)
  Receive Date: 20120813
  Receipt Date: 20120801
  Transmission Date: 20120928
  Serious: No
  Sender: FDA-Public Use
  Company Number: US-BIOGENIDEC-2012BI019507

PATIENT
  Sex: Male

DRUGS (6)
  1. BACLOFEN [Concomitant]
     Indication: MUSCLE SPASMS
  2. TYSABRI [Suspect]
     Indication: MULTIPLE SCLEROSIS
     Route: 042
     Dates: start: 20050131
  3. STEROIDS [Concomitant]
  4. TYSABRI [Suspect]
     Route: 042
     Dates: start: 20120501, end: 20120529
  5. AVONEX [Concomitant]
  6. IMMUNE GLOBULIN INTRAVENOUS (HUMAN) [Concomitant]

REACTIONS (6)
  - HYPERSENSITIVITY [None]
  - BACK PAIN [None]
  - PAIN [None]
  - MUSCLE SPASMS [None]
  - DYSPNOEA [None]
  - FLUSHING [None]
